FAERS Safety Report 7572079-X (Version None)
Quarter: 2011Q2

REPORT INFORMATION
  Report Type: 
  Country: None (occurrence: None)
  Receive Date: 20110624
  Receipt Date: 20110614
  Transmission Date: 20111010
  Serious: Yes (Death, Hospitalization)
  Sender: FDA-Public Use
  Company Number: FR-VERTEX PHARMACEUTICALS INC.-AE-2011-000178

PATIENT
  Sex: Female
  Weight: 60 kg

DRUGS (6)
  1. VX-950 [Suspect]
     Indication: HEPATITIS C
     Route: 048
     Dates: start: 20110309
  2. PEGASYS [Concomitant]
     Indication: HEPATITIS C
     Route: 058
     Dates: start: 20110309
  3. COPEGUS [Concomitant]
     Indication: HEPATITIS C
     Route: 048
     Dates: start: 20110309
  4. ALDACTONE [Concomitant]
     Indication: ASCITES
     Route: 048
     Dates: start: 20080101
  5. PROPRANOLOL [Concomitant]
     Indication: PORTAL HYPERTENSION
     Route: 048
     Dates: start: 20080101
  6. SINTROM [Concomitant]
     Indication: PORTAL VEIN THROMBOSIS
     Route: 048
     Dates: start: 20080101

REACTIONS (4)
  - GENERAL PHYSICAL HEALTH DETERIORATION [None]
  - GASTROINTESTINAL DISORDER [None]
  - SEPSIS [None]
  - ASTHMATIC CRISIS [None]
